FAERS Safety Report 6333150-3 (Version None)
Quarter: 2009Q3

REPORT INFORMATION
  Report Type: 
  Country: None (occurrence: None)
  Receive Date: 20090828
  Receipt Date: 20090821
  Transmission Date: 20100115
  Serious: Yes (Hospitalization)
  Sender: FDA-Public Use
  Company Number: FR-MERCK-0908FRA00036

PATIENT
  Age: 81 Year
  Sex: Male

DRUGS (13)
  1. PRIMAXIN [Suspect]
     Indication: ENTEROBACTER INFECTION
     Route: 042
     Dates: start: 20090617, end: 20090623
  2. PRIMAXIN [Suspect]
     Indication: PNEUMONIA
     Route: 042
     Dates: start: 20090617, end: 20090623
  3. ESOMEPRAZOLE MAGNESIUM [Concomitant]
     Route: 065
  4. OXAZEPAM [Concomitant]
     Route: 065
  5. DOBUTAMINE [Concomitant]
     Route: 065
  6. NOREPINEPHRINE BITARTRATE [Concomitant]
     Route: 065
  7. ALPRAZOLAM [Concomitant]
     Route: 065
  8. TRIMEBUTINE MALEATE [Concomitant]
     Route: 065
  9. ACETAMINOPHEN [Concomitant]
     Route: 065
  10. FUROSEMIDE [Concomitant]
     Route: 065
  11. HEPARIN CALCIUM [Concomitant]
     Route: 065
  12. DIAZEPAM [Concomitant]
     Route: 065
  13. MORPHINE [Concomitant]
     Route: 065

REACTIONS (5)
  - ANXIETY [None]
  - CONFUSIONAL STATE [None]
  - DEPRESSED LEVEL OF CONSCIOUSNESS [None]
  - MYOCLONUS [None]
  - TREMOR [None]
